FAERS Safety Report 9376366 (Version 1)
Quarter: 2013Q3

REPORT INFORMATION
  Report Type: Report from Study
  Country: CA (occurrence: CA)
  Receive Date: 20130701
  Receipt Date: 20130701
  Transmission Date: 20140515
  Serious: Yes (Other)
  Sender: FDA-Public Use
  Company Number: CA-JNJFOC-20130612696

PATIENT
  Sex: Male
  Weight: .99 kg

DRUGS (2)
  1. REMICADE [Suspect]
     Indication: CROHN^S DISEASE
     Dosage: FATHER^S DOSING
     Route: 042
     Dates: start: 20090806
  2. 6-MERCAPTOPURINE [Suspect]
     Indication: PRODUCT USED FOR UNKNOWN INDICATION
     Dosage: PARENT DOSING
     Route: 048

REACTIONS (3)
  - Premature baby [Not Recovered/Not Resolved]
  - Low birth weight baby [Recovering/Resolving]
  - Foetal exposure during pregnancy [Recovered/Resolved]
